FAERS Safety Report 15530801 (Version 2)
Quarter: 2018Q4

REPORT INFORMATION
  Report Type: Report from Study
  Country: CN (occurrence: CN)
  Receive Date: 20181018
  Receipt Date: 20181026
  Transmission Date: 20190205
  Serious: Yes (Hospitalization)
  Sender: FDA-Public Use
  Company Number: CN-AMGEN-CHNCT2018145882

PATIENT
  Age: 68 Year
  Sex: Male

DRUGS (14)
  1. RECOMBINANT HUMAN ERYTHROPOIETIN [Concomitant]
     Active Substance: ERYTHROPOIETIN
     Indication: NEPHROGENIC ANAEMIA
     Dosage: 4000 UNIT, 2 TIMES/WK, IV GTT
     Route: 042
     Dates: start: 20170705
  2. ESTAZOLAM. [Concomitant]
     Active Substance: ESTAZOLAM
     Indication: SLEEP TALKING
     Dosage: 3 MG, UNK (QN)
     Route: 048
     Dates: start: 20110722
  3. CINACALCET HCL [Suspect]
     Active Substance: CINACALCET HYDROCHLORIDE
     Dosage: 50 MG, UNK
     Route: 048
     Dates: start: 20180331, end: 20180401
  4. HYDROCHLORIDE B1 [Concomitant]
     Indication: HYPERTENSION
     Dosage: 10 MG, BID
     Route: 048
     Dates: start: 20160604
  5. KETOBEST [Concomitant]
     Indication: AZOTAEMIA
     Dosage: 3150 MG, TID
     Route: 048
     Dates: start: 20110725
  6. LEVOCARNITINE. [Concomitant]
     Active Substance: LEVOCARNITINE
     Indication: AZOTAEMIA
     Dosage: 1 G, 3 TIMES/WK, IV GTT
     Route: 042
     Dates: start: 20120321
  7. CLOPIDOGREL HYDROGEN SULFATE [Concomitant]
     Active Substance: CLOPIDOGREL BISULFATE
     Indication: HEART DISEASE CONGENITAL
     Dosage: 50 MG, QD
     Route: 048
     Dates: start: 20180411
  8. LOW-MOLECULAR-WEIGHT HEPARIN CALCIUM [Concomitant]
     Active Substance: HEPARIN CALCIUM
     Indication: AZOTAEMIA
     Dosage: 4100 UNIT, 3 TIMES/WK
     Route: 042
     Dates: start: 20110722
  9. VALSARTAN. [Concomitant]
     Active Substance: VALSARTAN
     Indication: HYPERPHOSPHATAEMIA
     Dosage: 80 MG, BID
     Route: 048
     Dates: start: 20110725
  10. HERBAL [Concomitant]
     Indication: HYPERPARATHYROIDISM SECONDARY
     Dosage: 0.5 MUG, BID
     Route: 048
     Dates: start: 20180828
  11. SEVELAMER CARBONATE. [Concomitant]
     Active Substance: SEVELAMER CARBONATE
     Indication: HYPERPHOSPHATAEMIA
     Dosage: 800 MG, TID
     Route: 048
     Dates: start: 20180205
  12. CINACALCET HCL [Suspect]
     Active Substance: CINACALCET HYDROCHLORIDE
     Indication: HYPERPARATHYROIDISM SECONDARY
     Dosage: 25 MG, UNK
     Route: 048
     Dates: start: 20180302, end: 20180331
  13. AMLODIPINE BESYLATE AND ATORVASTATIN CALCIUM [Concomitant]
     Active Substance: AMLODIPINE BESYLATE\ATORVASTATIN CALCIUM
     Indication: HYPERTENSION
     Dosage: 10 MG, BID
     Route: 048
     Dates: start: 20120604
  14. CALCIUM CARBONATE PCH [Concomitant]
     Indication: HYPOCALCAEMIA
     Dosage: 0.6 G, TID
     Route: 048
     Dates: start: 20150415

REACTIONS (1)
  - Fistula inflammation [Recovered/Resolved]

NARRATIVE: CASE EVENT DATE: 20180918
